FAERS Safety Report 13433833 (Version 3)
Quarter: 2017Q3

REPORT INFORMATION
  Report Type: Report from Study
  Country: FR (occurrence: FR)
  Receive Date: 20170412
  Receipt Date: 20170710
  Transmission Date: 20171127
  Serious: Yes (Other)
  Sender: FDA-Public Use
  Company Number: PHHY2016FR132408

PATIENT
  Age: 57 Year
  Sex: Male

DRUGS (13)
  1. DUROGESIC [Suspect]
     Active Substance: FENTANYL
     Indication: PRODUCT USED FOR UNKNOWN INDICATION
     Dosage: UNK
     Route: 065
  2. CERTICAN [Suspect]
     Active Substance: EVEROLIMUS
     Indication: LIVER TRANSPLANT
     Dosage: 1.5 MG, QD
     Route: 048
     Dates: start: 20141027, end: 20150304
  3. CORTANCYL [Concomitant]
     Active Substance: PREDNISONE
     Indication: IMMUNOSUPPRESSANT DRUG THERAPY
     Dosage: 5 MG, QD
     Route: 065
     Dates: start: 20141027, end: 20141112
  4. ADVAGRAF [Concomitant]
     Active Substance: TACROLIMUS
     Dosage: 3 MG, QD
     Route: 065
     Dates: start: 20150929
  5. INEXIUM [Concomitant]
     Active Substance: ESOMEPRAZOLE
     Indication: PROPHYLAXIS
     Dosage: 4 MG, UNK
     Route: 065
     Dates: start: 20140514
  6. CERTICAN [Suspect]
     Active Substance: EVEROLIMUS
     Indication: PROPHYLAXIS AGAINST TRANSPLANT REJECTION
     Dosage: 1 MG, QD
     Route: 048
     Dates: start: 20150305, end: 20150325
  7. ADVAGRAF [Concomitant]
     Active Substance: TACROLIMUS
     Indication: IMMUNOSUPPRESSANT DRUG THERAPY
     Dosage: 2 MG, QD
     Route: 065
     Dates: start: 20150326, end: 20150826
  8. LOXEN [Concomitant]
     Active Substance: NICARDIPINE HYDROCHLORIDE
     Indication: HYPERTENSION
     Dosage: 20 K 3 MG
     Route: 065
  9. MYFORTIC [Suspect]
     Active Substance: MYCOPHENOLATE SODIUM
     Indication: LIVER TRANSPLANT
     Dosage: 1440 MG, QD
     Route: 065
     Dates: start: 20140522
  10. MYFORTIC [Suspect]
     Active Substance: MYCOPHENOLATE SODIUM
     Indication: PROPHYLAXIS AGAINST TRANSPLANT REJECTION
     Dosage: 1440 MG, QD
     Route: 065
     Dates: start: 20141027, end: 20161003
  11. CELLCEPT [Concomitant]
     Active Substance: MYCOPHENOLATE MOFETIL\MYCOPHENOLATE MOFETIL HYDROCHLORIDE
     Indication: IMMUNOSUPPRESSANT DRUG THERAPY
     Dosage: 2000 MG, QD
     Route: 065
     Dates: start: 20161004
  12. LAROXYL [Suspect]
     Active Substance: AMITRIPTYLINE
     Indication: PRODUCT USED FOR UNKNOWN INDICATION
     Route: 065
  13. ADVAGRAF [Concomitant]
     Active Substance: TACROLIMUS
     Dosage: 4 MG, QD
     Route: 065
     Dates: start: 20150827, end: 20150928

REACTIONS (26)
  - Thrombocytopenia [Recovered/Resolved]
  - Hypertriglyceridaemia [Recovered/Resolved]
  - Alanine aminotransferase increased [Recovered/Resolved]
  - Abdominal pain upper [Recovered/Resolved]
  - Biliary dilatation [Recovered/Resolved]
  - Mouth ulceration [Not Recovered/Not Resolved]
  - Weight increased [Unknown]
  - Nausea [Recovered/Resolved]
  - Intestinal transit time abnormal [Recovered/Resolved]
  - Liver function test abnormal [Unknown]
  - Depression [Not Recovered/Not Resolved]
  - Vertigo [Recovered/Resolved]
  - Hyperglycaemia [Recovered/Resolved]
  - Asthenia [Unknown]
  - Neuroma [Not Recovered/Not Resolved]
  - Leukopenia [Unknown]
  - Hepatic steatosis [Not Recovered/Not Resolved]
  - Cholestasis [Recovered/Resolved]
  - Hypercholesterolaemia [Unknown]
  - Weight decreased [Unknown]
  - Cell death [Recovering/Resolving]
  - Hyperglycaemia [Recovering/Resolving]
  - Hypertriglyceridaemia [Recovering/Resolving]
  - Fatigue [Unknown]
  - Somnolence [Not Recovered/Not Resolved]
  - Gamma-glutamyltransferase increased [Recovering/Resolving]

NARRATIVE: CASE EVENT DATE: 20141027
